FAERS Safety Report 10987768 (Version 2)
Quarter: 2015Q2

REPORT INFORMATION
  Report Type: Spontaneous
  Country: US (occurrence: US)
  Receive Date: 20150404
  Receipt Date: 20150525
  Transmission Date: 20150821
  Serious: No
  Sender: FDA-Public Use
  Company Number: US-JNJFOC-20141104711

PATIENT
  Age: 78 Year
  Sex: Female
  Weight: 48.99 kg

DRUGS (4)
  1. REMICADE [Suspect]
     Active Substance: INFLIXIMAB
     Indication: PYODERMA GANGRENOSUM
     Dosage: 2ND INFUSION
     Route: 042
     Dates: start: 20141018
  2. BONIVA [Suspect]
     Active Substance: IBANDRONATE SODIUM
     Indication: AUTOIMMUNE DISORDER
     Route: 065
     Dates: start: 20141024
  3. BONIVA [Suspect]
     Active Substance: IBANDRONATE SODIUM
     Indication: AUTOIMMUNE DISORDER
     Dosage: STARTED 2 YEARS PRIOR TO THE DATE OF THIS REPORT
     Route: 065
  4. REMICADE [Suspect]
     Active Substance: INFLIXIMAB
     Indication: PYODERMA GANGRENOSUM
     Route: 042
     Dates: start: 201410

REACTIONS (4)
  - Pain in extremity [Not Recovered/Not Resolved]
  - Product use issue [Not Recovered/Not Resolved]
  - Musculoskeletal discomfort [Not Recovered/Not Resolved]
  - Muscular weakness [Not Recovered/Not Resolved]

NARRATIVE: CASE EVENT DATE: 201410
